FAERS Safety Report 4307364-8 (Version None)
Quarter: 2004Q1

REPORT INFORMATION
  Report Type: 
  Country: None (occurrence: None)
  Receive Date: 20040226
  Receipt Date: 20040212
  Transmission Date: 20041129
  Serious: Yes (Other)
  Sender: FDA-Public Use
  Company Number: 2004009467

PATIENT
  Sex: Male

DRUGS (6)
  1. VIAGRA [Suspect]
     Indication: ERECTILE DYSFUNCTION
     Dosage: DAILY
  2. SIMVASTATIN [Concomitant]
  3. AMIODARONE HCL [Concomitant]
  4. DIGOXIN [Concomitant]
  5. ACETYLSALICYLIC ACID (ACETYLSALICYLUIC ACID) [Concomitant]
  6. WARFARIN SODIUM [Concomitant]

REACTIONS (6)
  - CHROMATOPSIA [None]
  - DRUG INEFFECTIVE [None]
  - FLUSHING [None]
  - HEPATIC CIRRHOSIS [None]
  - LOCAL SWELLING [None]
  - SKIN WARM [None]
